FAERS Safety Report 5465434-5 (Version None)
Quarter: 2007Q3

REPORT INFORMATION
  Report Type: 
  Country: None (occurrence: None)
  Receive Date: 20070920
  Receipt Date: 20070920
  Transmission Date: 20080115
  Serious: No
  Sender: FDA-Public Use
  Company Number: None

PATIENT
  Age: 49 Year
  Sex: Male

DRUGS (1)
  1. AMPRENAVIR [Suspect]
     Indication: HIV INFECTION
     Dosage: 750MG BID
     Dates: start: 20060216, end: 20060224

REACTIONS (1)
  - RASH [None]
